FAERS Safety Report 11318314 (Version 4)
Quarter: 2025Q4

REPORT INFORMATION
  Report Type: Report from Study
  Country: US (occurrence: US)
  Receive Date: 20150728
  Receipt Date: 20251223
  Transmission Date: 20260117
  Serious: Yes (Other)
  Sender: JAZZ
  Company Number: US-JAZZ-2014-US-003200

PATIENT
  Age: 24 Year
  Sex: Female
  Weight: 65.306 kg

DRUGS (17)
  1. XYREM [Suspect]
     Active Substance: SODIUM OXYBATE
     Indication: Narcolepsy
     Dosage: 2.25 GRAM, BID
     Dates: start: 20140308, end: 20140314
  2. XYREM [Suspect]
     Active Substance: SODIUM OXYBATE
     Indication: Cataplexy
     Dosage: 2.25 GRAM, BID
     Dates: start: 2014, end: 2014
  3. XYREM [Suspect]
     Active Substance: SODIUM OXYBATE
     Indication: Somnolence
     Dosage: DOSE ADJUSTMENT
  4. XYREM [Suspect]
     Active Substance: SODIUM OXYBATE
     Dosage: 4.5 GRAM, BID
     Dates: start: 2014
  5. NUVIGIL [Suspect]
     Active Substance: ARMODAFINIL
     Indication: Narcolepsy
  6. ATIVAN [Suspect]
     Active Substance: LORAZEPAM
     Indication: Product used for unknown indication
  7. KLONOPIN [Suspect]
     Active Substance: CLONAZEPAM
     Indication: Product used for unknown indication
     Dosage: UNK
  8. MIRENA [Suspect]
     Active Substance: LEVONORGESTREL
     Indication: Product used for unknown indication
  9. BELSOMRA [Suspect]
     Active Substance: SUVOREXANT
     Indication: Product used for unknown indication
  10. PROZAC [Concomitant]
     Active Substance: FLUOXETINE HYDROCHLORIDE
     Indication: Depression
     Dosage: 20 MG, QD
     Dates: start: 20140206
  11. PRAZOSIN [Concomitant]
     Active Substance: PRAZOSIN
     Indication: Hypervigilance
     Dosage: 1 MG, QD
     Dates: start: 20140206, end: 20150519
  12. LORATADINE [Concomitant]
     Active Substance: LORATADINE
     Indication: Hypersensitivity
     Dosage: 10 MG, QD
     Dates: start: 20090221
  13. LORYNA [Concomitant]
     Active Substance: DROSPIRENONE\ETHINYL ESTRADIOL
     Indication: Contraception
  14. NASACORT [Concomitant]
     Active Substance: TRIAMCINOLONE ACETONIDE
     Indication: Product used for unknown indication
     Dosage: UNK
     Dates: start: 20140218, end: 20150519
  15. OXYMETAZOLINE [Concomitant]
     Active Substance: OXYMETAZOLINE
     Indication: Product used for unknown indication
     Dosage: UNK
     Dates: start: 20070221, end: 20150519
  16. ZYRTEC [Concomitant]
     Active Substance: CETIRIZINE HYDROCHLORIDE
     Indication: Product used for unknown indication
  17. ZEPBOUND [Concomitant]
     Active Substance: TIRZEPATIDE
     Indication: Product used for unknown indication

REACTIONS (7)
  - Epilepsy [Recovered/Resolved]
  - Generalised tonic-clonic seizure [Recovered/Resolved]
  - Idiopathic intracranial hypertension [Recovered/Resolved]
  - Migraine [Unknown]
  - Fall [Recovered/Resolved]
  - Head injury [Not Recovered/Not Resolved]
  - Headache [Not Recovered/Not Resolved]

NARRATIVE: CASE EVENT DATE: 20140310
